FAERS Safety Report 5212145-7 (Version None)
Quarter: 2007Q1

REPORT INFORMATION
  Report Type: 
  Country: None (occurrence: None)
  Receive Date: 20070118
  Receipt Date: 20070111
  Transmission Date: 20070707
  Serious: Yes (Other)
  Sender: FDA-Public Use
  Company Number: US-SANOFI-SYNTHELABO-A03200700322

PATIENT
  Age: 64 Year
  Sex: Female
  Weight: 59 kg

DRUGS (8)
  1. WELLBUTRIN [Concomitant]
     Dosage: UNK
     Route: 048
  2. NICOTINE [Suspect]
     Indication: SMOKING CESSATION THERAPY
     Dosage: UNK
     Route: 062
     Dates: start: 20061101
  3. ASPIRIN [Suspect]
     Indication: CARDIAC DISORDER
     Dosage: UNK
     Route: 048
  4. NITROQUICK [Concomitant]
     Dosage: UNK
     Route: 060
  5. VYTORIN [Concomitant]
     Dosage: UNK
     Route: 048
  6. TOPROL-XL [Concomitant]
     Dosage: UNK
     Route: 048
  7. PAXIL [Concomitant]
     Dosage: UNK
     Route: 048
  8. PLAVIX [Suspect]
     Indication: CARDIAC DISORDER
     Dosage: UNK
     Route: 048

REACTIONS (7)
  - BLISTER [None]
  - CHEST PAIN [None]
  - CRYING [None]
  - EMOTIONAL DISTRESS [None]
  - SKIN HAEMORRHAGE [None]
  - SUICIDAL IDEATION [None]
  - SUICIDE ATTEMPT [None]
